FAERS Safety Report 21763636 (Version 2)
Quarter: 2023Q1

REPORT INFORMATION
  Report Type: Spontaneous
  Country: US (occurrence: US)
  Receive Date: 20221222
  Receipt Date: 20230210
  Transmission Date: 20230417
  Serious: Yes (Hospitalization, Other)
  Sender: FDA-Public Use
  Company Number: US-002147023-NVSC2022US293175

PATIENT
  Age: 4 Year
  Sex: Female
  Weight: 15.1 kg

DRUGS (1)
  1. KYMRIAH [Suspect]
     Active Substance: TISAGENLECLEUCEL
     Indication: Acute lymphocytic leukaemia
     Dosage: UNK, ONCE/SINGLE (3.9 X 10E6/KG)
     Route: 042
     Dates: start: 20221208, end: 20221208

REACTIONS (5)
  - Blast cell count increased [Recovering/Resolving]
  - Cytokine release syndrome [Unknown]
  - Acute lymphocytic leukaemia [Unknown]
  - Malignant neoplasm progression [Unknown]
  - Pyrexia [Unknown]

NARRATIVE: CASE EVENT DATE: 20221215
